FAERS Safety Report 9346564 (Version 1)
Quarter: 2013Q2

REPORT INFORMATION
  Report Type: Spontaneous
  Country: US (occurrence: US)
  Receive Date: 20130613
  Receipt Date: 20130613
  Transmission Date: 20140414
  Serious: Yes (Hospitalization)
  Sender: FDA-Public Use
  Company Number: US-BAYER-2013-072252

PATIENT
  Age: 31 Year
  Sex: Female
  Weight: 82.09 kg

DRUGS (7)
  1. YAZ [Suspect]
  2. PRAVASTATIN [Concomitant]
     Dosage: 20 MG, A DAY
     Route: 048
  3. LEXAPRO [Concomitant]
     Dosage: 20 MG, A DAY
     Route: 048
  4. IBUPROFEN [Concomitant]
     Dosage: 800 MG, PRN
     Route: 048
  5. PHENTERMINE [Concomitant]
     Dosage: 37.5 MG, A DAY
     Route: 048
  6. FLEXERIL [Concomitant]
     Dosage: 10 MG, PRN
  7. XANAX [Concomitant]
     Dosage: 0.5 MG, BID AS NEEDED
     Route: 048

REACTIONS (1)
  - Pulmonary embolism [None]
